FAERS Safety Report 8916835 (Version 1)
Quarter: 2012Q4

REPORT INFORMATION
  Report Type: 
  Country: US (occurrence: US)
  Receive Date: 20121120
  Receipt Date: 20121120
  Transmission Date: 20130627
  Serious: Yes (Other)
  Sender: FDA-Public Use
  Company Number: US-COVIDIEN/TYCO HEALTHCARE/MALLINCKRODT-T201203879

PATIENT
  Sex: Male

DRUGS (4)
  1. METHADOSE [Suspect]
     Indication: PAIN
     Dosage: 15 mg Q 6 hours
     Route: 048
  2. FENTANYL CITRATE [Suspect]
     Indication: PAIN
     Dosage: 15 mcg Q 10 minutes
     Route: 042
  3. FENTANYL CITRATE [Suspect]
     Dosage: 25-50 mcg Q hour prn
     Route: 042
  4. DEXAMETHASONE [Suspect]
     Indication: PAIN
     Dosage: 4 mg Q 6 hours

REACTIONS (8)
  - Delirium [Recovered/Resolved]
  - Myoclonus [Recovered/Resolved]
  - Hallucination, tactile [Recovered/Resolved]
  - Confusional state [Recovered/Resolved]
  - Agitation [Recovered/Resolved]
  - Disorientation [Recovered/Resolved]
  - Hallucination, visual [Recovered/Resolved]
  - Pain [Recovered/Resolved]
